FAERS Safety Report 21088604 (Version 1)
Quarter: 2022Q3

REPORT INFORMATION
  Report Type: Spontaneous
  Country: US (occurrence: None)
  Receive Date: 20220715
  Receipt Date: 20220715
  Transmission Date: 20221027
  Serious: Yes (Disabling)
  Sender: FDA-Public Use
  Company Number: None

PATIENT
  Age: 76 Year
  Sex: Male
  Weight: 99.79 kg

DRUGS (1)
  1. PAXLOVID [Suspect]
     Active Substance: NIRMATRELVIR\RITONAVIR
     Indication: SARS-CoV-2 test positive
     Dosage: FREQUENCY : TWICE A DAY;?
     Route: 048
     Dates: start: 20220611, end: 20220616

REACTIONS (8)
  - Nasopharyngitis [None]
  - SARS-CoV-2 test positive [None]
  - Rebound effect [None]
  - Nasal congestion [None]
  - Respiration abnormal [None]
  - Rhinorrhoea [None]
  - Asthma [None]
  - Cough [None]

NARRATIVE: CASE EVENT DATE: 20220622
